FAERS Safety Report 8802027 (Version 2)
Quarter: 2015Q1

REPORT INFORMATION
  Report Type: Report from Study
  Country: US (occurrence: US)
  Receive Date: 20120921
  Receipt Date: 20150304
  Transmission Date: 20150721
  Serious: Yes (Death, Hospitalization)
  Sender: FDA-Public Use
  Company Number: US-ROCHE-1102401

PATIENT
  Sex: Female

DRUGS (26)
  1. ZOMETA [Concomitant]
     Active Substance: ZOLEDRONIC ACID
     Route: 065
  2. TAXOL [Concomitant]
     Active Substance: PACLITAXEL
     Route: 042
  3. LEVAQUIN [Concomitant]
     Active Substance: LEVOFLOXACIN
  4. LORAZEPAM. [Concomitant]
     Active Substance: LORAZEPAM
     Route: 042
  5. FLEXERIL [Concomitant]
     Active Substance: CYCLOBENZAPRINE HYDROCHLORIDE
  6. DEXAMETHASONE. [Concomitant]
     Active Substance: DEXAMETHASONE
     Route: 042
  7. CYCLOBENZAPRINE [Concomitant]
     Active Substance: CYCLOBENZAPRINE
     Route: 065
  8. HEPARIN SODIUM. [Concomitant]
     Active Substance: HEPARIN SODIUM
     Route: 042
  9. DEXAMETHASONE. [Concomitant]
     Active Substance: DEXAMETHASONE
     Route: 042
  10. PALONOSETRON [Concomitant]
     Active Substance: PALONOSETRON
     Route: 042
  11. DETROL [Concomitant]
     Active Substance: TOLTERODINE TARTRATE
     Route: 042
  12. GEMCITABINE [Concomitant]
     Active Substance: GEMCITABINE\GEMCITABINE HYDROCHLORIDE
     Route: 042
  13. LITHIUM CARBONATE. [Concomitant]
     Active Substance: LITHIUM CARBONATE
     Route: 048
  14. AVASTIN [Suspect]
     Active Substance: BEVACIZUMAB
     Indication: BREAST CANCER
     Route: 042
     Dates: start: 20060703
  15. TRAZODONE [Concomitant]
     Active Substance: TRAZODONE HYDROCHLORIDE
     Route: 048
  16. VICODIN [Concomitant]
     Active Substance: ACETAMINOPHEN\HYDROCODONE BITARTRATE
     Dosage: 6-8 HOURS, 1-2 TAB
     Route: 065
  17. RANITIDINE [Concomitant]
     Active Substance: RANITIDINE\RANITIDINE HYDROCHLORIDE
     Route: 042
  18. ALBUTEROL. [Concomitant]
     Active Substance: ALBUTEROL
     Route: 065
  19. GEMCITABINE [Concomitant]
     Active Substance: GEMCITABINE\GEMCITABINE HYDROCHLORIDE
     Route: 042
  20. TAXOL [Concomitant]
     Active Substance: PACLITAXEL
     Route: 042
  21. AVASTIN [Suspect]
     Active Substance: BEVACIZUMAB
     Indication: LUNG NEOPLASM MALIGNANT
     Route: 042
  22. CARBOPLATIN. [Suspect]
     Active Substance: CARBOPLATIN
     Indication: PRODUCT USED FOR UNKNOWN INDICATION
     Route: 065
  23. GEMCITABINE [Concomitant]
     Active Substance: GEMCITABINE\GEMCITABINE HYDROCHLORIDE
     Route: 042
  24. GEMCITABINE [Concomitant]
     Active Substance: GEMCITABINE\GEMCITABINE HYDROCHLORIDE
     Route: 042
  25. DIPHENHYDRAMINE [Concomitant]
     Active Substance: DIPHENHYDRAMINE
     Route: 042
  26. ALTEPLASE [Concomitant]
     Active Substance: ALTEPLASE
     Route: 042

REACTIONS (18)
  - Hypoxia [Unknown]
  - Dyspnoea exertional [Unknown]
  - Fatigue [Unknown]
  - Depression [Unknown]
  - Vomiting [Recovered/Resolved]
  - Wheezing [Unknown]
  - Chest discomfort [Unknown]
  - Weight increased [Unknown]
  - Drug hypersensitivity [Unknown]
  - Dyspnoea [Recovered/Resolved]
  - Feeling hot [Unknown]
  - Pain [Unknown]
  - Crying [Unknown]
  - Decreased appetite [Unknown]
  - Cough [Recovered/Resolved]
  - Death [Fatal]
  - Malaise [Unknown]
  - Swelling [Recovered/Resolved]
